FAERS Safety Report 5723863-6 (Version None)
Quarter: 2008Q2

REPORT INFORMATION
  Report Type: 
  Country: None (occurrence: None)
  Receive Date: 20080430
  Receipt Date: 20080413
  Transmission Date: 20081010
  Serious: Yes (Life-Threatening, Hospitalization)
  Sender: FDA-Public Use
  Company Number: EE-BAYER-200816355GPV

PATIENT
  Age: 53 Year
  Sex: Male
  Weight: 68 kg

DRUGS (45)
  1. MOXIFLOXACIN HCL [Suspect]
     Indication: PERITONITIS
     Dosage: TOTAL DAILY DOSE: 400 MG  UNIT DOSE: 400 MG
     Route: 042
     Dates: start: 20071120, end: 20071127
  2. OMEPRAZOLE [Concomitant]
     Indication: PROPHYLAXIS
     Route: 042
     Dates: start: 20071120, end: 20071130
  3. OMEPRAZOLE [Concomitant]
     Route: 048
     Dates: start: 20071130, end: 20071228
  4. ENALAPRIL [Concomitant]
     Indication: HYPERTENSION
     Route: 048
     Dates: start: 20071130
  5. METOPROLOL TARTRATE [Concomitant]
     Indication: HYPERTENSION
     Route: 048
     Dates: start: 20071130
  6. APO K [Concomitant]
     Indication: MEDICAL DIET
     Route: 048
     Dates: start: 20071211, end: 20071226
  7. PARACETAMOL [Concomitant]
     Indication: PAIN
     Route: 042
     Dates: start: 20071204, end: 20071204
  8. PARACETAMOL [Concomitant]
     Route: 048
     Dates: start: 20071210, end: 20071226
  9. DICLOFENAC SODIUM [Concomitant]
     Indication: PAIN
     Route: 030
     Dates: start: 20071124, end: 20071125
  10. DICLOFENAC SODIUM [Concomitant]
     Route: 048
     Dates: start: 20071211, end: 20071224
  11. DICLOFENAC SODIUM [Concomitant]
     Route: 030
     Dates: start: 20071128, end: 20071128
  12. LIPOFUNDIN [Concomitant]
     Indication: PARENTERAL NUTRITION
     Route: 042
     Dates: start: 20071120, end: 20071123
  13. FENTANYL CITRATE [Concomitant]
     Indication: ANAESTHESIA
     Route: 008
     Dates: start: 20071204, end: 20071204
  14. FENTANYL CITRATE [Concomitant]
     Route: 008
     Dates: start: 20071120, end: 20071121
  15. MARCAINE [Concomitant]
     Indication: ANAESTHESIA
     Route: 008
     Dates: start: 20071120, end: 20071121
  16. SODIUM CHLORIDE [Concomitant]
     Indication: ANAESTHESIA
     Route: 008
     Dates: start: 20071120, end: 20071121
  17. SODIUM CHLORIDE [Concomitant]
     Dosage: UNIT DOSE: 0.9 %
     Route: 042
     Dates: start: 20071223, end: 20071224
  18. SODIUM CHLORIDE [Concomitant]
     Dosage: UNIT DOSE: 5.8 %
     Route: 042
     Dates: start: 20071120, end: 20071124
  19. RINGER'S [Concomitant]
     Indication: MEDICAL DIET
     Route: 042
     Dates: start: 20071124, end: 20071125
  20. RINGER'S [Concomitant]
     Route: 042
     Dates: start: 20071204, end: 20071204
  21. RINGER'S [Concomitant]
     Route: 042
     Dates: start: 20071127, end: 20071206
  22. RINGER'S [Concomitant]
     Route: 042
     Dates: start: 20071120, end: 20071120
  23. GELATIN [Concomitant]
     Indication: MEDICAL DIET
     Route: 042
     Dates: start: 20071120, end: 20071120
  24. GELATIN [Concomitant]
     Route: 042
     Dates: start: 20071223, end: 20071224
  25. KETOPROFEN [Concomitant]
     Indication: PAIN
     Route: 030
     Dates: start: 20071120, end: 20071227
  26. PETHIDIN [Concomitant]
     Indication: PAIN
     Route: 042
     Dates: start: 20071204, end: 20071204
  27. PETHIDIN [Concomitant]
     Route: 042
     Dates: start: 20071120, end: 20071122
  28. ALBUMIN NOS [Concomitant]
     Indication: PARENTERAL NUTRITION
     Route: 042
     Dates: start: 20071121, end: 20071203
  29. CLEMASTINE FUMARATE [Concomitant]
     Indication: ERYTHEMA NODOSUM
     Route: 030
     Dates: start: 20071120, end: 20071201
  30. POTASSIUM CHLORIDE [Concomitant]
     Indication: MEDICAL DIET
     Dosage: UNIT DOSE: 7.4 %
     Route: 042
     Dates: start: 20071120, end: 20071203
  31. INSULIN [Concomitant]
     Indication: MEDICAL DIET
     Route: 042
     Dates: start: 20071120, end: 20071125
  32. AMINO ACIDS [Concomitant]
     Indication: PARENTERAL NUTRITION
     Route: 042
     Dates: start: 20071123, end: 20071204
  33. DIAZEPAM [Concomitant]
     Indication: INSOMNIA
     Route: 030
     Dates: start: 20071120, end: 20071123
  34. DIAZEPAM [Concomitant]
     Route: 030
     Dates: start: 20071120, end: 20071123
  35. METAMIZOLE [METAMIZOLE] [Concomitant]
     Indication: PYREXIA
     Route: 030
     Dates: start: 20071128, end: 20071128
  36. ERYTHROCYTE SUSPENSION [Concomitant]
     Indication: ANAEMIA
     Route: 042
     Dates: start: 20071129, end: 20071129
  37. METOCLOPRAMIDE [Concomitant]
     Indication: NAUSEA
     Dates: start: 20071130, end: 20071206
  38. ATROPINE [Concomitant]
     Indication: ANAESTHESIA
     Route: 042
     Dates: start: 20071204, end: 20071204
  39. THIOPENTAL SODIUM [Concomitant]
     Indication: ANAESTHESIA
     Route: 042
     Dates: start: 20071204, end: 20071204
  40. ESPERAN [Concomitant]
     Indication: ANAESTHESIA
     Route: 042
     Dates: start: 20071204, end: 20071204
  41. ROBINUL [Concomitant]
     Indication: ANAESTHESIA
     Route: 042
     Dates: start: 20071204, end: 20071204
  42. ZOPICLONE [Concomitant]
     Indication: INSOMNIA
     Route: 048
     Dates: start: 20071208, end: 20071208
  43. ZOPICLONE [Concomitant]
     Route: 048
     Dates: start: 20071216, end: 20071227
  44. LOPERAMIDE HCL [Concomitant]
     Indication: DIARRHOEA
     Route: 048
     Dates: start: 20071209, end: 20071210
  45. PREGABALIN [Concomitant]
     Indication: POLYNEUROPATHY
     Route: 042
     Dates: start: 20071220, end: 20071222

REACTIONS (3)
  - PORTAL VEIN THROMBOSIS [None]
  - WOUND DEHISCENCE [None]
  - WOUND INFECTION [None]
